FAERS Safety Report 25573795 (Version 1)
Quarter: 2025Q3

REPORT INFORMATION
  Report Type: Spontaneous
  Country: US (occurrence: US)
  Receive Date: 20250717
  Receipt Date: 20250717
  Transmission Date: 20251021
  Serious: Yes (Other)
  Sender: BRACCO
  Company Number: US-BRACCO-2025US02483

PATIENT
  Age: 48 Year

DRUGS (1)
  1. VUEWAY [Suspect]
     Active Substance: GADOPICLENOL
     Indication: Magnetic resonance imaging spinal
     Route: 042
     Dates: start: 20250407, end: 20250407

REACTIONS (9)
  - Hypersensitivity [Recovering/Resolving]
  - Tachycardia [Recovering/Resolving]
  - Hypertension [Recovering/Resolving]
  - Pharyngeal swelling [Recovering/Resolving]
  - Throat tightness [Recovering/Resolving]
  - Upper respiratory tract congestion [Recovering/Resolving]
  - Dysphagia [Recovering/Resolving]
  - Urticaria [Recovering/Resolving]
  - Paraesthesia [Recovering/Resolving]

NARRATIVE: CASE EVENT DATE: 20250407
